FAERS Safety Report 8983929 (Version 2)
Quarter: 2013Q1

REPORT INFORMATION
  Report Type: Spontaneous
  Country: US (occurrence: None)
  Receive Date: 20121130
  Receipt Date: 20121130
  Transmission Date: 20140127
  Serious: Yes (Other)
  Sender: FDA-Public Use
  Company Number: US-1194342

PATIENT
  Age: 70 Year
  Sex: Female
  Weight: 69.4 kg

DRUGS (9)
  1. LATANOPROST 0.005 % OPHTHALMIC SOLUTION [Suspect]
     Route: 047
     Dates: start: 20120611
  2. POTASSIUM [Concomitant]
  3. CALCIUM [Concomitant]
  4. MAGNESIUM [Concomitant]
  5. VITAMIN C [Concomitant]
  6. FLAXSEED OIL [Concomitant]
  7. VITAMIN D [Concomitant]
  8. KETOROLAC [Concomitant]
  9. TIMOLOL [Concomitant]

REACTIONS (3)
  - Lip swelling [None]
  - Swelling face [None]
  - Product quality issue [None]
